FAERS Safety Report 9278813 (Version 1)
Quarter: 2013Q2

REPORT INFORMATION
  Report Type: Spontaneous
  Country: US (occurrence: US)
  Receive Date: 20130508
  Receipt Date: 20130508
  Transmission Date: 20140414
  Serious: Yes (Other)
  Sender: FDA-Public Use
  Company Number: US-PFIZER INC-2013142148

PATIENT
  Age: 59 Year
  Sex: Female
  Weight: 58.5 kg

DRUGS (12)
  1. PREMARIN [Suspect]
     Indication: VULVOVAGINAL DRYNESS
     Dosage: 0.45MG/ 0.5MG OR 1.5MG, 1X/DAY
     Route: 048
     Dates: end: 201302
  2. PREMARIN [Suspect]
     Indication: HOT FLUSH
  3. CELEBREX [Concomitant]
     Indication: RHEUMATOID ARTHRITIS
     Dosage: UNK
  4. METHOTREXATE [Concomitant]
     Dosage: 2.5 MG, UNK
  5. NEXIUM [Concomitant]
     Indication: GASTROOESOPHAGEAL REFLUX DISEASE
     Dosage: UNK
  6. PREDNISONE [Concomitant]
     Dosage: 2 MG, 1X/DAY
  7. PLAQUENIL [Concomitant]
     Dosage: 200 MG, 2X/DAY
  8. PRAVASTATIN [Concomitant]
     Indication: BLOOD CHOLESTEROL INCREASED
     Dosage: 20 MG, 1X/DAY
  9. FOLIC ACID [Concomitant]
     Dosage: 1 MG, 1X/DAY
  10. LYRICA [Concomitant]
     Dosage: 75 MG, 1X/DAY
  11. LEVOXYL [Concomitant]
     Indication: THYROID DISORDER
     Dosage: 50 UG, 1X/DAY
  12. AMITRIPTYLINE [Concomitant]
     Indication: ANXIETY
     Dosage: 10 MG, 1X/DAY

REACTIONS (1)
  - Breast cancer female [Unknown]
